FAERS Safety Report 11641838 (Version 1)
Quarter: 2015Q4

REPORT INFORMATION
  Report Type: Spontaneous
  Country: IT (occurrence: IT)
  Receive Date: 20151019
  Receipt Date: 20151019
  Transmission Date: 20160304
  Serious: Yes (Other)
  Sender: FDA-Public Use
  Company Number: IT-BAYER-2015-439861

PATIENT
  Age: 24 Year
  Sex: Female

DRUGS (1)
  1. CIPROXIN [Suspect]
     Active Substance: CIPROFLOXACIN
     Indication: INFECTION
     Dosage: 1 DF, ONCE
     Route: 048
     Dates: start: 20150915, end: 20150915

REACTIONS (3)
  - Pruritus [Recovering/Resolving]
  - Presyncope [Recovering/Resolving]
  - Urticaria [Recovering/Resolving]

NARRATIVE: CASE EVENT DATE: 20150915
